FAERS Safety Report 5262133-X (Version None)
Quarter: 2007Q1

REPORT INFORMATION
  Report Type: 
  Country: None (occurrence: None)
  Receive Date: 20070311
  Receipt Date: 20070228
  Transmission Date: 20070707
  Serious: No
  Sender: FDA-Public Use
  Company Number: 2006UW08251

PATIENT
  Age: 35 Year
  Sex: Male
  Weight: 102.3 kg

DRUGS (1)
  1. SEROQUEL [Suspect]
     Indication: MOOD SWINGS
     Route: 048

REACTIONS (1)
  - DIABETES MELLITUS [None]
